FAERS Safety Report 20221361 (Version 6)
Quarter: 2022Q4

REPORT INFORMATION
  Report Type: Spontaneous
  Country: JP (occurrence: JP)
  Receive Date: 20211223
  Receipt Date: 20221125
  Transmission Date: 20230113
  Serious: Yes (Other)
  Sender: FDA-Public Use
  Company Number: JP-NOVARTISPH-NVSJ2021JP012688

PATIENT
  Age: 68 Year
  Sex: Female
  Weight: 56 kg

DRUGS (2)
  1. BEOVU [Suspect]
     Active Substance: BROLUCIZUMAB-DBLL
     Indication: Neovascular age-related macular degeneration
     Dosage: 6 MG
     Route: 031
     Dates: start: 20210728, end: 20210728
  2. GLIVEC [Concomitant]
     Active Substance: IMATINIB MESYLATE
     Indication: Colon cancer
     Dosage: 400 MG
     Route: 048
     Dates: start: 20110308

REACTIONS (10)
  - Eye inflammation [Recovering/Resolving]
  - Vitritis [Recovering/Resolving]
  - Anterior chamber inflammation [Recovering/Resolving]
  - Anterior chamber cell [Unknown]
  - Blindness transient [Recovering/Resolving]
  - Retinal vein occlusion [Unknown]
  - Retinal artery occlusion [Unknown]
  - Retinal vasculitis [Unknown]
  - Vitreous floaters [Unknown]
  - Vitreous opacities [Unknown]

NARRATIVE: CASE EVENT DATE: 20210825
